FAERS Safety Report 8956389 (Version 1)
Quarter: 2012Q4

REPORT INFORMATION
  Report Type: 
  Country: US (occurrence: US)
  Receive Date: 20121210
  Receipt Date: 20121210
  Transmission Date: 20130627
  Serious: Yes (Hospitalization, Other)
  Sender: FDA-Public Use
  Company Number: US-BAYER-2012-128044

PATIENT
  Age: 49 Year
  Sex: Female
  Weight: 59 kg

DRUGS (10)
  1. YAZ [Suspect]
     Indication: CONTRACEPTION
     Dosage: UNK
     Dates: start: 2007, end: 20110711
  2. GIANVI [Suspect]
     Indication: CONTRACEPTION
     Dosage: UNK
     Dates: start: 20110711, end: 20110806
  3. RAMIPRIL [Concomitant]
     Indication: BLOOD PRESSURE HIGH
     Dosage: 2.5 mg, UNK
     Dates: start: 2010, end: 2011
  4. FLUCONAZOLE [Concomitant]
     Dosage: 150 mg, UNK
  5. AZITHROMYCIN [Concomitant]
     Dosage: 500 mg, UNK
  6. ACETAMINOPHEN [Concomitant]
  7. DOCUSATE [Concomitant]
  8. ONDANSETRON [Concomitant]
  9. OXYCODONE [Concomitant]
  10. DOXYCYCLINE [Concomitant]

REACTIONS (13)
  - Cerebrovascular accident [None]
  - Cerebrovascular accident [None]
  - Jugular vein thrombosis [None]
  - Thrombophlebitis superficial [None]
  - Cholelithiasis [None]
  - Tremor [None]
  - Cognitive disorder [None]
  - Visual impairment [None]
  - Speech disorder [None]
  - Memory impairment [None]
  - Illusion [None]
  - Unresponsive to stimuli [None]
  - Syncope [None]
